FAERS Safety Report 15533875 (Version 1)
Quarter: 2018Q4

REPORT INFORMATION
  Report Type: Spontaneous
  Country: FR (occurrence: FR)
  Receive Date: 20181019
  Receipt Date: 20181019
  Transmission Date: 20190205
  Serious: Yes (Other)
  Sender: FDA-Public Use
  Company Number: FR-ANIPHARMA-2018-FR-000163

PATIENT
  Age: 66 Year
  Sex: Female
  Weight: 80 kg

DRUGS (1)
  1. ARIMIDEX [Suspect]
     Active Substance: ANASTROZOLE
     Indication: BREAST CANCER
     Dosage: 1 DF DAILY
     Route: 048
     Dates: start: 20180208, end: 20180530

REACTIONS (4)
  - Vertigo [Not Recovered/Not Resolved]
  - Sensory loss [Not Recovered/Not Resolved]
  - Suicidal ideation [Not Recovered/Not Resolved]
  - Somnolence [Not Recovered/Not Resolved]

NARRATIVE: CASE EVENT DATE: 201804
